FAERS Safety Report 15905578 (Version 2)
Quarter: 2019Q1

REPORT INFORMATION
  Report Type: Spontaneous
  Country: CH (occurrence: CH)
  Receive Date: 20190204
  Receipt Date: 20190206
  Transmission Date: 20190417
  Serious: Yes (Death, Hospitalization)
  Sender: FDA-Public Use
  Company Number: CH-ASTRAZENECA-2019SE18720

PATIENT
  Age: 77 Year
  Sex: Male

DRUGS (8)
  1. XARELTO [Suspect]
     Active Substance: RIVAROXABAN
     Indication: THROMBOSIS PROPHYLAXIS
     Route: 065
     Dates: start: 201710, end: 20190101
  2. MORPHINE [Concomitant]
     Active Substance: MORPHINE
     Indication: DYSPNOEA AT REST
     Dates: start: 20181129
  3. TAGRISSO [Suspect]
     Active Substance: OSIMERTINIB
     Indication: LUNG ADENOCARCINOMA STAGE IV
     Route: 048
     Dates: start: 201802, end: 20181231
  4. DAFALGAN [Suspect]
     Active Substance: ACETAMINOPHEN
     Route: 065
     Dates: start: 201710, end: 20190101
  5. STILNOX [Suspect]
     Active Substance: ZOLPIDEM TARTRATE
     Route: 065
     Dates: start: 201802
  6. AMLODIPINE [Suspect]
     Active Substance: AMLODIPINE BESYLATE
     Indication: HYPERTENSION
     Route: 065
     Dates: start: 201710, end: 20190101
  7. IRBESARTAN. [Suspect]
     Active Substance: IRBESARTAN
     Indication: HYPERTENSION
     Route: 065
     Dates: start: 201710, end: 20190101
  8. MAGNESIUM BIOMED [Concomitant]
     Dates: start: 20190101

REACTIONS (3)
  - Jaundice cholestatic [Fatal]
  - Dose calculation error [Unknown]
  - Hepatocellular injury [Fatal]

NARRATIVE: CASE EVENT DATE: 201710
